FAERS Safety Report 9768949 (Version 1)
Quarter: 2013Q4

REPORT INFORMATION
  Report Type: Spontaneous
  Country: GB (occurrence: None)
  Receive Date: 20131216
  Receipt Date: 20131216
  Transmission Date: 20140711
  Serious: Yes (Other)
  Sender: FDA-Public Use
  Company Number: 152256

PATIENT
  Age: 15 Year
  Sex: Female

DRUGS (1)
  1. LEUCOVORIN CALCIUM [Suspect]
     Indication: EYE INFECTION TOXOPLASMAL

REACTIONS (2)
  - Drug reaction with eosinophilia and systemic symptoms [None]
  - Hepatic necrosis [None]
